FAERS Safety Report 24188102 (Version 1)
Quarter: 2024Q3

REPORT INFORMATION
  Report Type: Spontaneous
  Country: FR (occurrence: FR)
  Receive Date: 20240808
  Receipt Date: 20240808
  Transmission Date: 20241016
  Serious: Yes (Hospitalization)
  Sender: AUROBINDO
  Company Number: FR-AFSSAPS-PC2024000602

PATIENT
  Age: 93 Year
  Sex: Female
  Weight: 44 kg

DRUGS (6)
  1. BISOPROLOL [Suspect]
     Active Substance: BISOPROLOL\BISOPROLOL FUMARATE
     Indication: Hypertrophic cardiomyopathy
     Dosage: 1 DOSAGE FORM, 1 TOTAL (1.0.0(1,25 MG)
     Route: 048
  2. FUROSEMIDE [Suspect]
     Active Substance: FUROSEMIDE
     Indication: Hypertrophic cardiomyopathy
     Dosage: 2 DOSAGE FORM, 1 TOTAL (1.1.0(40 MG)
     Route: 048
  3. RAMIPRIL [Suspect]
     Active Substance: RAMIPRIL
     Indication: Hypertension
     Dosage: 1 DOSAGE FORM, 1 TOTAL (1.0.0(1,25 MG)
     Route: 048
  4. Previscan [Concomitant]
     Indication: Atrial fibrillation
     Dosage: 0.75 DOSAGE FORM, 1 TOTAL (0.0.3/4)
     Route: 048
  5. POLYETHYLENE GLYCOLS [Concomitant]
     Active Substance: POLYETHYLENE GLYCOLS
     Indication: Constipation
     Dosage: 1 DOSAGE FORM, 1 TOTAL (1.0.0)
     Route: 048
  6. ATORVASTATIN [Concomitant]
     Active Substance: ATORVASTATIN
     Indication: Dyslipidaemia
     Dosage: 1 DOSAGE FORM, 1 TOTAL (0.0.1(10 MG)
     Route: 048

REACTIONS (3)
  - Orthostatic hypotension [Recovering/Resolving]
  - Vertigo [Recovering/Resolving]
  - Fall [Recovering/Resolving]

NARRATIVE: CASE EVENT DATE: 20180527
